FAERS Safety Report 23218592 (Version 1)
Quarter: 2023Q4

REPORT INFORMATION
  Report Type: Spontaneous
  Country: CN (occurrence: CN)
  Receive Date: 20231122
  Receipt Date: 20231122
  Transmission Date: 20240110
  Serious: Yes (Other)
  Sender: FDA-Public Use
  Company Number: CN-PFIZER INC-PV202300188743

PATIENT
  Age: 23 Year
  Sex: Male
  Weight: 59 kg

DRUGS (5)
  1. METHOTREXATE SODIUM [Suspect]
     Active Substance: METHOTREXATE SODIUM
     Indication: Precursor T-lymphoblastic lymphoma/leukaemia
     Dosage: 8.5 G, 1X/DAY
     Route: 041
     Dates: start: 20231021, end: 20231022
  2. ASPARAGINASE [Suspect]
     Active Substance: ASPARAGINASE
     Indication: Precursor T-lymphoblastic lymphoma/leukaemia
     Dosage: 10000 IU, 1X/DAY
     Route: 041
     Dates: start: 20231021, end: 20231023
  3. PHOSPHOLIPID [Concomitant]
     Active Substance: PHOSPHOLIPID
     Indication: Hepatobiliary disorder prophylaxis
     Dosage: 10 ML, 1X/DAY
     Route: 042
     Dates: start: 20231021, end: 20231107
  4. TORSEMIDE [Concomitant]
     Active Substance: TORSEMIDE
     Indication: Polyuria
     Dosage: 20 MG, 1X/DAY
     Route: 042
     Dates: start: 20231021, end: 20231031
  5. GRANISETRON HYDROCHLORIDE [Concomitant]
     Active Substance: GRANISETRON HYDROCHLORIDE
     Indication: Prophylaxis of nausea and vomiting
     Dosage: 3 MG, 2X/DAY
     Route: 042
     Dates: start: 20231021, end: 20231027

REACTIONS (2)
  - Acute kidney injury [Recovering/Resolving]
  - Drug level increased [Recovering/Resolving]

NARRATIVE: CASE EVENT DATE: 20231023
